FAERS Safety Report 4519840-3 (Version None)
Quarter: 2004Q4

REPORT INFORMATION
  Report Type: 
  Country: None (occurrence: None)
  Receive Date: 20041207
  Receipt Date: 20041115
  Transmission Date: 20050328
  Serious: Yes (Other)
  Sender: FDA-Public Use
  Company Number: PHNR2004AU01642

PATIENT
  Age: 60 Year
  Sex: Male

DRUGS (2)
  1. VISKEN [Suspect]
     Dosage: 30 MG DAILY
     Dates: start: 19820101
  2. MULTI-VITAMINS [Concomitant]

REACTIONS (3)
  - BLADDER CATHETER MANAGEMENT [None]
  - BLADDER DISTENSION [None]
  - URINARY RETENTION [None]
